FAERS Safety Report 12823741 (Version 1)
Quarter: 2016Q4

REPORT INFORMATION
  Report Type: Spontaneous
  Country: FR (occurrence: FR)
  Receive Date: 20161006
  Receipt Date: 20161006
  Transmission Date: 20170207
  Serious: Yes (Other)
  Sender: FDA-Public Use
  Company Number: FR-ELI_LILLY_AND_COMPANY-FR201609010387

PATIENT
  Age: 52 Year
  Sex: Male

DRUGS (3)
  1. CISPLATIN. [Suspect]
     Active Substance: CISPLATIN
     Indication: LUNG NEOPLASM MALIGNANT
     Dosage: UNK
     Route: 065
     Dates: start: 20151201, end: 20160223
  2. AVASTIN [Suspect]
     Active Substance: BEVACIZUMAB
     Indication: LUNG NEOPLASM MALIGNANT
     Dosage: 720 MG, CYCLICAL
     Route: 042
     Dates: start: 20160112, end: 20160223
  3. ALIMTA [Suspect]
     Active Substance: PEMETREXED DISODIUM
     Indication: LUNG NEOPLASM MALIGNANT
     Dosage: 1000 MG, CYCLICAL
     Route: 042
     Dates: start: 20151201, end: 20160407

REACTIONS (7)
  - Dysgeusia [Recovered/Resolved]
  - Hypoaesthesia [Recovering/Resolving]
  - Oesophageal candidiasis [Recovered/Resolved]
  - Paraesthesia [Recovering/Resolving]
  - Decreased appetite [Recovered/Resolved]
  - Teeth brittle [Not Recovered/Not Resolved]
  - Myalgia [Unknown]

NARRATIVE: CASE EVENT DATE: 201601
